FAERS Safety Report 10007379 (Version 1)
Quarter: 2014Q1

REPORT INFORMATION
  Report Type: Report from Study
  Country: DE (occurrence: DE)
  Receive Date: 20140313
  Receipt Date: 20140313
  Transmission Date: 20141002
  Serious: Yes (Hospitalization, Other)
  Sender: FDA-Public Use
  Company Number: DE-GLAXOSMITHKLINE-B0860536D

PATIENT
  Age: 62 Year
  Sex: Female

DRUGS (1)
  1. PAZOPANIB [Suspect]
     Indication: SARCOMA
     Dosage: 800MG PER DAY
     Route: 048
     Dates: start: 20121130

REACTIONS (3)
  - Seroma [Recovered/Resolved]
  - Infection [Recovered/Resolved]
  - Pain [Recovered/Resolved with Sequelae]
